FAERS Safety Report 17242127 (Version 1)
Quarter: 2020Q1

REPORT INFORMATION
  Report Type: Spontaneous
  Country: FR (occurrence: FR)
  Receive Date: 20200107
  Receipt Date: 20200107
  Transmission Date: 20200409
  Serious: Yes (Hospitalization)
  Sender: FDA-Public Use
  Company Number: FR-ZYDUS-046096

PATIENT
  Age: 86 Year
  Sex: Female

DRUGS (10)
  1. PERINDOPRIL/PERINDOPRIL ERBUMINE [Suspect]
     Active Substance: PERINDOPRIL ERBUMINE
     Indication: TOXICITY TO VARIOUS AGENTS
     Route: 048
     Dates: start: 20191110, end: 20191110
  2. PLANTAGO OVATA [Suspect]
     Active Substance: HERBALS\PLANTAGO OVATA LEAF
     Indication: TOXICITY TO VARIOUS AGENTS
     Dosage: ()
     Route: 048
     Dates: start: 20191110, end: 20191110
  3. RIVAROXABAN [Suspect]
     Active Substance: RIVAROXABAN
     Indication: TOXICITY TO VARIOUS AGENTS
     Dosage: ()
     Route: 048
     Dates: start: 20191110, end: 20191110
  4. ESOMEPRAZOLE/ESOMEPRAZOLE MAGNESIUM/ESOMEPRAZOLE SODIUM [Suspect]
     Active Substance: ESOMEPRAZOLE
     Indication: TOXICITY TO VARIOUS AGENTS
     Route: 048
     Dates: start: 20191110, end: 20191110
  5. DONEPEZIL/DONEPEZIL HYDROCHLORIDE [Suspect]
     Active Substance: DONEPEZIL HYDROCHLORIDE
     Indication: TOXICITY TO VARIOUS AGENTS
     Route: 048
     Dates: start: 20191110, end: 20191110
  6. PRAVASTATIN. [Suspect]
     Active Substance: PRAVASTATIN
     Indication: TOXICITY TO VARIOUS AGENTS
     Route: 048
     Dates: start: 20191110, end: 20191110
  7. BETAXOLOL/BETAXOLOL HYDROCHLORIDE [Suspect]
     Active Substance: BETAXOLOL HYDROCHLORIDE
     Indication: TOXICITY TO VARIOUS AGENTS
     Dosage: ()
     Route: 048
     Dates: start: 20191110, end: 20191110
  8. PARACETAMOL [Suspect]
     Active Substance: ACETAMINOPHEN
     Indication: TOXICITY TO VARIOUS AGENTS
     Route: 048
     Dates: start: 20191110, end: 20191110
  9. AMIODARONE [Suspect]
     Active Substance: AMIODARONE
     Indication: TOXICITY TO VARIOUS AGENTS
     Route: 048
     Dates: start: 20191110, end: 20191110
  10. TRAMADOL. [Suspect]
     Active Substance: TRAMADOL
     Indication: TOXICITY TO VARIOUS AGENTS
     Route: 048
     Dates: start: 20191110, end: 20191110

REACTIONS (2)
  - Electrocardiogram QT prolonged [Not Recovered/Not Resolved]
  - Bradycardia [Not Recovered/Not Resolved]

NARRATIVE: CASE EVENT DATE: 20191111
